FAERS Safety Report 11567463 (Version 4)
Quarter: 2016Q3

REPORT INFORMATION
  Report Type: Report from Study
  Country: US (occurrence: US)
  Receive Date: 20150929
  Receipt Date: 20160701
  Transmission Date: 20161109
  Serious: Yes (Other)
  Sender: FDA-Public Use
  Company Number: US-AMGEN-USASP2015099737

PATIENT
  Age: 62 Year
  Sex: Male

DRUGS (2)
  1. ENBREL [Suspect]
     Active Substance: ETANERCEPT
     Indication: PSORIATIC ARTHROPATHY
     Dosage: 50 MG, QWK
     Route: 065
     Dates: start: 20141214
  2. ENBREL [Suspect]
     Active Substance: ETANERCEPT
     Indication: PSORIASIS

REACTIONS (30)
  - Peripheral artery occlusion [Unknown]
  - Circulatory collapse [Unknown]
  - Therapeutic response delayed [Unknown]
  - Muscle spasms [Unknown]
  - Cardiac disorder [Recovering/Resolving]
  - Asthenia [Unknown]
  - Chest pain [Unknown]
  - Arteriosclerosis [Unknown]
  - Fracture [Unknown]
  - Peripheral swelling [Unknown]
  - Psoriasis [Recovered/Resolved]
  - Accident [Unknown]
  - Pulse abnormal [Unknown]
  - Pain in extremity [Unknown]
  - Mobility decreased [Unknown]
  - Arthralgia [Unknown]
  - Oropharyngeal pain [Unknown]
  - Foot fracture [Unknown]
  - Pelvic fracture [Unknown]
  - Vitamin D deficiency [Unknown]
  - Laceration [Unknown]
  - Inappropriate schedule of drug administration [Unknown]
  - Skin plaque [Unknown]
  - Hernia [Unknown]
  - Skin exfoliation [Unknown]
  - Coronary artery occlusion [Unknown]
  - Limb operation [Unknown]
  - Lethargy [Unknown]
  - Feeling abnormal [Unknown]
  - Pain [Unknown]

NARRATIVE: CASE EVENT DATE: 2014
